FAERS Safety Report 4414588-8 (Version None)
Quarter: 2004Q3

REPORT INFORMATION
  Report Type: 
  Country: None (occurrence: None)
  Receive Date: 20040729
  Receipt Date: 20040715
  Transmission Date: 20050211
  Serious: Yes (Other)
  Sender: FDA-Public Use
  Company Number: 8006828

PATIENT
  Age: 33 Year
  Sex: Male

DRUGS (1)
  1. KEPPRA [Suspect]
     Indication: POST-TRAUMATIC EPILEPSY
     Dosage: 3 G/D
     Dates: start: 20040601

REACTIONS (1)
  - CONVULSION [None]
